FAERS Safety Report 5770169-5 (Version None)
Quarter: 2008Q2

REPORT INFORMATION
  Report Type: 
  Country: None (occurrence: None)
  Receive Date: 20080613
  Receipt Date: 20080422
  Transmission Date: 20081010
  Serious: No
  Sender: FDA-Public Use
  Company Number: US-ABBOTT-08P-163-0448474-00

PATIENT
  Sex: Male
  Weight: 127.12 kg

DRUGS (9)
  1. HUMIRA [Suspect]
     Indication: RHEUMATOID ARTHRITIS
     Route: 058
     Dates: start: 20080201, end: 20080326
  2. HUMIRA [Suspect]
     Route: 058
     Dates: start: 20080326
  3. METFORMIN HCL [Concomitant]
     Indication: DIABETES MELLITUS
     Route: 048
  4. GLIPIZIDE [Concomitant]
     Indication: DIABETES MELLITUS
     Route: 048
  5. BENZAPRIL [Concomitant]
     Indication: HYPERTENSION
     Route: 048
  6. OXYCODONE HYDROCHLORIDE [Concomitant]
     Indication: PAIN
     Route: 048
  7. TYLOX [Concomitant]
     Indication: PAIN
     Route: 048
  8. ALLERGY PILL [Concomitant]
     Indication: HYPERSENSITIVITY
     Route: 048
  9. SULFASALAZINE [Concomitant]
     Indication: RHEUMATOID ARTHRITIS
     Route: 048

REACTIONS (2)
  - DRUG INEFFECTIVE [None]
  - PAIN [None]
